FAERS Safety Report 10068670 (Version 1)
Quarter: 2014Q2

REPORT INFORMATION
  Report Type: Spontaneous
  Country: TN (occurrence: TN)
  Receive Date: 20140409
  Receipt Date: 20140409
  Transmission Date: 20141212
  Serious: Yes (Hospitalization, Other)
  Sender: FDA-Public Use
  Company Number: DE-ASTRAZENECA-2014SE24404

PATIENT
  Age: 34 Year
  Sex: Male

DRUGS (9)
  1. ETHAMBUTOL [Concomitant]
     Indication: PULMONARY TUBERCULOSIS
     Dates: start: 20130207, end: 20130401
  2. OMEPRAZOLE [Suspect]
     Route: 048
     Dates: start: 20130310, end: 20130410
  3. ISONIAZID [Concomitant]
     Indication: MENINGITIS TUBERCULOUS
     Dates: start: 20130207, end: 20130401
  4. ISONIAZID [Concomitant]
     Indication: PULMONARY TUBERCULOSIS
     Dates: start: 20130207, end: 20130401
  5. RIFAMPICIN [Concomitant]
     Indication: MENINGITIS TUBERCULOUS
     Dates: start: 20130207, end: 20130401
  6. RIFAMPICIN [Concomitant]
     Indication: PULMONARY TUBERCULOSIS
     Dates: start: 20130207, end: 20130401
  7. PYRAZINAMIDE [Concomitant]
     Indication: MENINGITIS TUBERCULOUS
     Dates: start: 20130207, end: 20130401
  8. PYRAZINAMIDE [Concomitant]
     Indication: PULMONARY TUBERCULOSIS
     Dates: start: 20130207, end: 20130401
  9. ETHAMBUTOL [Concomitant]
     Indication: MENINGITIS TUBERCULOUS
     Dates: start: 20130207, end: 20130401

REACTIONS (4)
  - Pancreatitis acute [Recovering/Resolving]
  - Blood bilirubin increased [Recovering/Resolving]
  - Aspartate aminotransferase increased [Recovering/Resolving]
  - Alanine aminotransferase increased [Recovering/Resolving]
